FAERS Safety Report 19366705 (Version 2)
Quarter: 2021Q3

REPORT INFORMATION
  Report Type: Spontaneous
  Country: US (occurrence: US)
  Receive Date: 20210603
  Receipt Date: 20210713
  Transmission Date: 20211014
  Serious: No
  Sender: FDA-Public Use
  Company Number: US-JNJFOC-20210555351

PATIENT
  Age: 59 Year
  Sex: Male
  Weight: 88.53 kg

DRUGS (1)
  1. TREMFYA [Suspect]
     Active Substance: GUSELKUMAB
     Indication: PSORIASIS
     Dosage: RESTARTED ON 26/MAY/2021, FREQUENCY 1 EVERY 3?4 WEEKS
     Route: 065

REACTIONS (5)
  - Product dose omission issue [Unknown]
  - Off label use [Unknown]
  - Device malfunction [Unknown]
  - Product packaging issue [Unknown]
  - Product use issue [Unknown]

NARRATIVE: CASE EVENT DATE: 20210526
